FAERS Safety Report 7771485-8 (Version None)
Quarter: 2011Q3

REPORT INFORMATION
  Report Type: 
  Country: None (occurrence: None)
  Receive Date: 20110922
  Receipt Date: 20110215
  Transmission Date: 20111222
  Serious: No
  Sender: FDA-Public Use
  Company Number: US-ASTRAZENECA-2010SE49273

PATIENT
  Age: 58 Year
  Sex: Female
  Weight: 104.8 kg

DRUGS (6)
  1. LOVASTATIN [Concomitant]
  2. LEXAPRO [Concomitant]
  3. SEROQUEL [Suspect]
     Indication: BIPOLAR DISORDER
     Route: 048
     Dates: start: 20090101
  4. TOPAMA [Concomitant]
  5. INDOMETHACIN [Concomitant]
     Indication: GOUT
  6. CLONAZEPAM [Concomitant]

REACTIONS (8)
  - NASOPHARYNGITIS [None]
  - GOUT [None]
  - WEIGHT INCREASED [None]
  - NERVOUSNESS [None]
  - PARAESTHESIA [None]
  - ANXIETY [None]
  - PNEUMONIA [None]
  - FATIGUE [None]
